FAERS Safety Report 17848988 (Version 2)
Quarter: 2020Q3

REPORT INFORMATION
  Report Type: Spontaneous
  Country: SI (occurrence: SI)
  Receive Date: 20200602
  Receipt Date: 20200715
  Transmission Date: 20201103
  Serious: Yes (Hospitalization, Other)
  Sender: FDA-Public Use
  Company Number: SI-SA-2018SA341479

PATIENT

DRUGS (4)
  1. LEKADOL [Concomitant]
     Active Substance: ACETAMINOPHEN
  2. DUPIXENT [Suspect]
     Active Substance: DUPILUMAB
     Indication: DERMATITIS ATOPIC
     Dosage: UNK
     Dates: start: 201805, end: 2018
  3. DUPIXENT [Suspect]
     Active Substance: DUPILUMAB
     Indication: ASTHMA
     Dosage: UNK
     Route: 058
     Dates: start: 201806, end: 202003
  4. DUPIXENT [Suspect]
     Active Substance: DUPILUMAB
     Dosage: UNK
     Route: 058
     Dates: start: 20200604

REACTIONS (42)
  - Sputum purulent [Unknown]
  - Tonsillitis streptococcal [Recovering/Resolving]
  - Pharyngeal erythema [Unknown]
  - Pain in extremity [Unknown]
  - Rheumatic disorder [Unknown]
  - Pruritus [Unknown]
  - Pneumonia bacterial [Unknown]
  - Heart rate increased [Unknown]
  - Chest pain [Unknown]
  - Lymph node pain [Unknown]
  - Fatigue [Unknown]
  - Tonsillar hypertrophy [Unknown]
  - Gastrooesophageal reflux disease [Unknown]
  - Dizziness postural [Unknown]
  - Cardiac murmur [Unknown]
  - Conjunctivitis [Recovered/Resolved]
  - Chronic tonsillitis [Unknown]
  - Dysphagia [Unknown]
  - Weight decreased [Unknown]
  - Spinal pain [Unknown]
  - Asthma [Unknown]
  - Oligoarthritis [Unknown]
  - Arthralgia [Recovering/Resolving]
  - Joint swelling [Unknown]
  - Synovitis [Recovering/Resolving]
  - Pyrexia [Not Recovered/Not Resolved]
  - Malaise [Unknown]
  - Tonsillar disorder [Not Recovered/Not Resolved]
  - Infection [Unknown]
  - Eye inflammation [Recovered/Resolved]
  - Pneumonia [Unknown]
  - Dyspnoea [Unknown]
  - Cough [Unknown]
  - Joint warmth [Unknown]
  - Oropharyngeal pain [Not Recovered/Not Resolved]
  - Iron deficiency anaemia [Unknown]
  - Decreased appetite [Unknown]
  - Septic arthritis streptococcal [Recovering/Resolving]
  - Dyspnoea [Unknown]
  - Palpitations [Unknown]
  - Oral herpes [Unknown]
  - Therapeutic response decreased [Unknown]

NARRATIVE: CASE EVENT DATE: 2018
